FAERS Safety Report 6189181-X (Version None)
Quarter: 2009Q2

REPORT INFORMATION
  Report Type: 
  Country: None (occurrence: None)
  Receive Date: 20090513
  Receipt Date: 20090505
  Transmission Date: 20091009
  Serious: Yes (Hospitalization)
  Sender: FDA-Public Use
  Company Number: US-ABBOTT-09P-163-0571947-00

PATIENT
  Sex: Female
  Weight: 56.75 kg

DRUGS (7)
  1. HUMIRA [Suspect]
     Indication: CROHN'S DISEASE
     Route: 058
     Dates: start: 20080901, end: 20081220
  2. VITAMIN B-12 [Concomitant]
     Indication: CROHN'S DISEASE
  3. EFFEXOR [Concomitant]
     Indication: DEPRESSION
  4. CALCIUM [Concomitant]
     Indication: DRUG USE FOR UNKNOWN INDICATION
  5. VITAMINS [Concomitant]
     Indication: DRUG USE FOR UNKNOWN INDICATION
  6. PRILOSEC OTC [Concomitant]
     Indication: ULCER
  7. PANTASA [Concomitant]
     Indication: DIARRHOEA

REACTIONS (18)
  - ABDOMINAL PAIN [None]
  - BLISTER [None]
  - BLOOD CALCIUM DECREASED [None]
  - BLOOD POTASSIUM DECREASED [None]
  - BLOOD UREA DECREASED [None]
  - DIARRHOEA [None]
  - DRY SKIN [None]
  - ERYTHEMA [None]
  - HAEMATOCRIT DECREASED [None]
  - HAEMOGLOBIN DECREASED [None]
  - LARGE INTESTINAL OBSTRUCTION [None]
  - PAIN OF SKIN [None]
  - PRURITUS [None]
  - RASH PAPULAR [None]
  - RASH PRURITIC [None]
  - SKIN BURNING SENSATION [None]
  - SKIN NODULE [None]
  - WHITE BLOOD CELL COUNT DECREASED [None]
